FAERS Safety Report 23906732 (Version 2)
Quarter: 2024Q2

REPORT INFORMATION
  Report Type: Spontaneous
  Country: MY (occurrence: None)
  Receive Date: 20240528
  Receipt Date: 20240606
  Transmission Date: 20240716
  Serious: Yes (Other)
  Sender: FDA-Public Use
  Company Number: MY-ROCHE-3556675

PATIENT
  Sex: Female

DRUGS (12)
  1. RITUXIMAB [Suspect]
     Active Substance: RITUXIMAB
     Indication: Lymphoma transformation
     Route: 065
     Dates: start: 20221130, end: 20230425
  2. RITUXIMAB [Suspect]
     Active Substance: RITUXIMAB
     Route: 065
     Dates: start: 20240104, end: 20240208
  3. RITUXIMAB [Suspect]
     Active Substance: RITUXIMAB
     Route: 065
     Dates: start: 20240229, end: 20240416
  4. POLATUZUMAB VEDOTIN [Suspect]
     Active Substance: POLATUZUMAB VEDOTIN
     Indication: Lymphoma transformation
     Route: 065
     Dates: start: 20240229, end: 20240416
  5. CYCLOPHOSPHAMIDE [Suspect]
     Active Substance: CYCLOPHOSPHAMIDE
     Indication: Lymphoma transformation
     Route: 065
     Dates: start: 20221130, end: 20230425
  6. VINCRISTINE [Suspect]
     Active Substance: VINCRISTINE
     Indication: Lymphoma transformation
     Route: 065
     Dates: start: 20221130, end: 20230425
  7. PREDNISOLONE [Suspect]
     Active Substance: PREDNISOLONE
     Indication: Lymphoma transformation
     Route: 065
     Dates: start: 20221130, end: 20230425
  8. IFOSFAMIDE [Suspect]
     Active Substance: IFOSFAMIDE
     Indication: Lymphoma transformation
     Route: 065
     Dates: start: 20240104, end: 20240208
  9. CARBOPLATIN [Suspect]
     Active Substance: CARBOPLATIN
     Indication: Lymphoma transformation
     Route: 065
     Dates: start: 20240104, end: 20240208
  10. ETOPOSIDE [Suspect]
     Active Substance: ETOPOSIDE
     Indication: Lymphoma transformation
     Route: 065
     Dates: start: 20240104, end: 20240408
  11. BENDAMUSTINE [Suspect]
     Active Substance: BENDAMUSTINE
     Indication: Lymphoma transformation
     Route: 065
     Dates: start: 20240229, end: 20240416
  12. METHOTREXATE [Suspect]
     Active Substance: METHOTREXATE
     Indication: Lymphoma transformation
     Route: 065
     Dates: start: 20240104, end: 20240208

REACTIONS (5)
  - Off label use [Unknown]
  - Therapy partial responder [Unknown]
  - Lymphadenopathy [Unknown]
  - Disease progression [Unknown]
  - Metastases to meninges [Unknown]

NARRATIVE: CASE EVENT DATE: 20231226
